FAERS Safety Report 15696671 (Version 1)
Quarter: 2018Q4

REPORT INFORMATION
  Report Type: Spontaneous
  Country: US (occurrence: US)
  Receive Date: 20181206
  Receipt Date: 20181206
  Transmission Date: 20190205
  Serious: Yes (Hospitalization)
  Sender: FDA-Public Use
  Company Number: US-ANTARES PHARMA, INC.-2018-SPO-ME-0573

PATIENT
  Age: 16 Year
  Sex: Male
  Weight: 94.3 kg

DRUGS (6)
  1. VINCRISTINE [Suspect]
     Active Substance: VINCRISTINE
     Indication: B PRECURSOR TYPE ACUTE LEUKAEMIA
     Dosage: 2 MG, SINGLE
     Route: 042
     Dates: start: 20170715
  2. METHOTREXATE. [Suspect]
     Active Substance: METHOTREXATE
     Dosage: 40 MG, QWK
     Route: 048
     Dates: start: 20180425, end: 20180724
  3. MERCAPTOPURINE. [Suspect]
     Active Substance: MERCAPTOPURINE
     Indication: B PRECURSOR TYPE ACUTE LEUKAEMIA
     Dosage: 150 MG X6 WEEKLY 125 MG X1 WEEKLY
     Route: 048
     Dates: start: 20170620, end: 20180802
  4. METHOTREXATE. [Suspect]
     Active Substance: METHOTREXATE
     Indication: B PRECURSOR TYPE ACUTE LEUKAEMIA
     Dosage: 15 MG, SINGLE
     Route: 037
     Dates: start: 20170620
  5. PREDNISONE. [Suspect]
     Active Substance: PREDNISONE
     Indication: B PRECURSOR TYPE ACUTE LEUKAEMIA
     Dosage: 40 MG, BID
     Route: 048
     Dates: start: 20180424
  6. RUXOLITINIB [Suspect]
     Active Substance: RUXOLITINIB
     Indication: B PRECURSOR TYPE ACUTE LEUKAEMIA
     Dosage: 100 MG, BID
     Route: 048
     Dates: start: 20170620

REACTIONS (4)
  - Febrile neutropenia [Not Recovered/Not Resolved]
  - Gamma-glutamyltransferase increased [Not Recovered/Not Resolved]
  - Blood bilirubin increased [Not Recovered/Not Resolved]
  - Sepsis [Not Recovered/Not Resolved]

NARRATIVE: CASE EVENT DATE: 20180802
